FAERS Safety Report 5850891-2 (Version None)
Quarter: 2008Q3

REPORT INFORMATION
  Report Type: 
  Country: None (occurrence: None)
  Receive Date: 20080818
  Receipt Date: 20080812
  Transmission Date: 20090109
  Serious: Yes (Life-Threatening)
  Sender: FDA-Public Use
  Company Number: CERZ-1000246

PATIENT
  Age: 10 Year
  Sex: Male
  Weight: 24.2 kg

DRUGS (1)
  1. CEREZYME [Suspect]
     Indication: GAUCHER'S DISEASE
     Dosage: 60 U/KG, INTRAVENOUS
     Route: 042
     Dates: start: 19990101

REACTIONS (3)
  - COUGH [None]
  - PERIORBITAL OEDEMA [None]
  - STRIDOR [None]
